FAERS Safety Report 7408167-8 (Version None)
Quarter: 2011Q2

REPORT INFORMATION
  Report Type: 
  Country: None (occurrence: None)
  Receive Date: 20110412
  Receipt Date: 20110321
  Transmission Date: 20111010
  Serious: Yes (Hospitalization, Other)
  Sender: FDA-Public Use
  Company Number: US-BAYER-2010-002091

PATIENT
  Age: 18 Year
  Sex: Female

DRUGS (9)
  1. PEPCID [Concomitant]
  2. LYRICA [Concomitant]
  3. YASMIN [Suspect]
     Indication: PREMENSTRUAL SYNDROME
     Dosage: UNK
     Dates: start: 20070101, end: 20090101
  4. ZOFRAN [Concomitant]
  5. ADDERALL XR 10 [Concomitant]
  6. MIRALAX [Concomitant]
     Indication: BOWEL MOVEMENT IRREGULARITY
  7. SEASONIQUE [Concomitant]
  8. ACETAMINOPHEN [Concomitant]
  9. YAZ [Suspect]
     Indication: PREMENSTRUAL SYNDROME
     Dosage: UNK
     Dates: start: 20070101, end: 20090101

REACTIONS (2)
  - CHOLECYSTITIS [None]
  - GALLBLADDER INJURY [None]
